FAERS Safety Report 17965741 (Version 1)
Quarter: 2020Q3

REPORT INFORMATION
  Report Type: Report from Study
  Country: None (occurrence: BR)
  Receive Date: 20200701
  Receipt Date: 20200701
  Transmission Date: 20201103
  Serious: Yes (Other)
  Sender: FDA-Public Use
  Company Number: BR-ABBVIE-18K-020-2501416-00

PATIENT
  Sex: Male
  Weight: 120 kg

DRUGS (8)
  1. HYDROXYZINE [Concomitant]
     Active Substance: HYDROXYZINE HYDROCHLORIDE
     Indication: DEPRESSION
  2. LOSARTAN. [Concomitant]
     Active Substance: LOSARTAN
     Indication: HYPERTENSION
  3. ADVIL [Concomitant]
     Active Substance: IBUPROFEN
     Indication: PAIN
  4. RISPERIDONE. [Concomitant]
     Active Substance: RISPERIDONE
     Indication: SCHIZOPHRENIA
  5. CELECOXIB. [Concomitant]
     Active Substance: CELECOXIB
     Indication: PAIN
  6. HALDOL [Concomitant]
     Active Substance: HALOPERIDOL
     Indication: SCHIZOPHRENIA
  7. CLONAZEPAM. [Concomitant]
     Active Substance: CLONAZEPAM
     Indication: SCHIZOPHRENIA
  8. HUMIRA [Suspect]
     Active Substance: ADALIMUMAB
     Indication: PSORIATIC ARTHROPATHY
     Route: 058
     Dates: start: 20160115

REACTIONS (11)
  - Product administered at inappropriate site [Unknown]
  - Ear pain [Unknown]
  - Injection site pain [Recovered/Resolved]
  - Schizophrenia [Unknown]
  - Discomfort [Unknown]
  - Psoriasis [Unknown]
  - Hypoacusis [Not Recovered/Not Resolved]
  - Memory impairment [Unknown]
  - Tinnitus [Unknown]
  - Depression [Unknown]
  - Injection site pain [Unknown]

NARRATIVE: CASE EVENT DATE: 2016
